FAERS Safety Report 14016957 (Version 1)
Quarter: 2017Q3

REPORT INFORMATION
  Report Type: Spontaneous
  Country: US (occurrence: US)
  Receive Date: 20170927
  Receipt Date: 20170927
  Transmission Date: 20171128
  Serious: No
  Sender: FDA-Public Use
  Company Number: US-DEPOMED, INC.-US-2017DEP001198

PATIENT

DRUGS (2)
  1. GRALISE [Suspect]
     Active Substance: GABAPENTIN
     Indication: NERVE INJURY
     Dosage: 600 MG, TID
     Route: 048
     Dates: end: 2017
  2. GRALISE [Suspect]
     Active Substance: GABAPENTIN
     Indication: FIBROMYALGIA

REACTIONS (4)
  - Pain [Not Recovered/Not Resolved]
  - Product use in unapproved indication [Recovered/Resolved]
  - Drug ineffective [Not Recovered/Not Resolved]
  - Drug titration error [Unknown]

NARRATIVE: CASE EVENT DATE: 201704
